FAERS Safety Report 14379159 (Version 1)
Quarter: 2018Q1

REPORT INFORMATION
  Report Type: Report from Study
  Country: US (occurrence: US)
  Receive Date: 20180112
  Receipt Date: 20180112
  Transmission Date: 20180509
  Serious: Yes (Hospitalization)
  Sender: FDA-Public Use
  Company Number: US-GILEAD-2018-0315238

PATIENT
  Age: 53 Year
  Sex: Male

DRUGS (2)
  1. UPTRAVI [Suspect]
     Active Substance: SELEXIPAG
     Indication: PRODUCT USED FOR UNKNOWN INDICATION
     Route: 065
  2. AMBRISENTAN [Suspect]
     Active Substance: AMBRISENTAN
     Indication: PULMONARY HYPERTENSION
     Dosage: 10 MG, QD
     Route: 065
     Dates: start: 20170323

REACTIONS (6)
  - Myalgia [Not Recovered/Not Resolved]
  - Loss of personal independence in daily activities [Unknown]
  - Abnormal dreams [Not Recovered/Not Resolved]
  - Headache [Recovered/Resolved]
  - Hypotension [Unknown]
  - Dyspnoea [Unknown]
